FAERS Safety Report 4407074-2 (Version None)
Quarter: 2004Q3

REPORT INFORMATION
  Report Type: 
  Country: None (occurrence: None)
  Receive Date: 20040723
  Receipt Date: 20040723
  Transmission Date: 20050211
  Serious: Yes (Other)
  Sender: FDA-Public Use
  Company Number: None

PATIENT
  Age: 17 Year
  Sex: Female
  Weight: 45.3597 kg

DRUGS (1)
  1. PROZAC [Suspect]
     Dosage: 20 MG ONE QD
     Dates: start: 20040702

REACTIONS (3)
  - PHARMACEUTICAL PRODUCT COMPLAINT [None]
  - RASH [None]
  - URTICARIA [None]
